FAERS Safety Report 11116268 (Version 2)
Quarter: 2015Q2

REPORT INFORMATION
  Report Type: Spontaneous
  Country: US (occurrence: US)
  Receive Date: 20150515
  Receipt Date: 20150623
  Transmission Date: 20150821
  Serious: Yes (Hospitalization)
  Sender: FDA-Public Use
  Company Number: US-INCYTE CORPORATION-2015IN002082

PATIENT
  Age: 81 Year
  Sex: Male
  Weight: 79.37 kg

DRUGS (12)
  1. PREVACID [Concomitant]
     Active Substance: LANSOPRAZOLE
  2. COENZYME Q10 [Concomitant]
     Active Substance: UBIDECARENONE
  3. MIDODRINE [Concomitant]
     Active Substance: MIDODRINE
  4. MULTIVITAMIN                       /07504101/ [Concomitant]
     Active Substance: VITAMINS
  5. LEVOTHYROXINE [Concomitant]
     Active Substance: LEVOTHYROXINE
  6. CALCIUM [Concomitant]
     Active Substance: CALCIUM
  7. JAKAFI [Suspect]
     Active Substance: RUXOLITINIB
     Indication: MYELOFIBROSIS
     Dosage: 20 MG, BID
     Route: 048
     Dates: start: 20140121
  8. LORAZEPAM. [Concomitant]
     Active Substance: LORAZEPAM
  9. STOOL SOFTENER [Concomitant]
     Active Substance: DOCUSATE CALCIUM
  10. FOLIC ACID. [Concomitant]
     Active Substance: FOLIC ACID
  11. HYDROCODONE [Concomitant]
     Active Substance: HYDROCODONE
  12. PROCRIT [Concomitant]
     Active Substance: ERYTHROPOIETIN

REACTIONS (1)
  - Fall [Recovered/Resolved]

NARRATIVE: CASE EVENT DATE: 20150506
